FAERS Safety Report 9230237 (Version 2)
Quarter: 2013Q2

REPORT INFORMATION
  Report Type: Report from Study
  Country: BR (occurrence: BR)
  Receive Date: 20130415
  Receipt Date: 20130514
  Transmission Date: 20140414
  Serious: Yes (Other)
  Sender: FDA-Public Use
  Company Number: PHHY2013BR035328

PATIENT
  Sex: Male

DRUGS (12)
  1. FORASEQ [Suspect]
     Indication: EMPHYSEMA
     Dosage: 1 DF, BID (EVERY 12 HOURS)
  2. FORASEQ [Suspect]
     Dosage: 1 DF, BID (EVERY 12 HOURS)
  3. CRESTOR [Concomitant]
     Indication: BLOOD CHOLESTEROL
     Dosage: 1 DF, QD
     Route: 048
  4. ZETIA [Concomitant]
     Indication: BLOOD CHOLESTEROL
     Dosage: 1 DF, QD
     Route: 048
  5. PLAVIX [Concomitant]
     Indication: COAGULOPATHY
     Dosage: 1 DF, QD
     Route: 048
  6. CARDIAZEM [Concomitant]
     Indication: CARDIOMYOPATHY
     Dosage: 1 DF, QD
     Route: 048
  7. NATRILIX [Concomitant]
     Indication: CARDIOMYOPATHY
     Dosage: 1 DF, QD
     Route: 048
  8. MONOCORDIL [Concomitant]
     Indication: CARDIOMYOPATHY
     Dosage: 1 DF, QD
     Route: 048
  9. LASIX [Concomitant]
     Dosage: 1 DF, QD
     Route: 048
  10. ANCORON [Concomitant]
     Indication: CARDIOMYOPATHY
     Dosage: 1 DF, QD
     Route: 048
  11. SOMALGIN [Concomitant]
     Dosage: 1 DF, QD
     Route: 048
  12. MAREVAN [Concomitant]
     Indication: ANTICOAGULANT THERAPY
     Dosage: DEPENDING ON BLOOD RESULTS, THE DOSE CAN BE 0.25, 0.5 OR 1 TABLET
     Route: 048

REACTIONS (3)
  - Cardiac disorder [Recovering/Resolving]
  - Wheezing [Recovered/Resolved]
  - Dyspnoea [Recovered/Resolved]
